FAERS Safety Report 5287887-8 (Version None)
Quarter: 2007Q2

REPORT INFORMATION
  Report Type: 
  Country: None (occurrence: None)
  Receive Date: 20070405
  Receipt Date: 20070329
  Transmission Date: 20071010
  Serious: Yes (Life-Threatening)
  Sender: FDA-Public Use
  Company Number: US-JNJFOC-20070400077

PATIENT
  Age: 22 Year
  Sex: Male

DRUGS (2)
  1. INVEGA [Suspect]
     Indication: SCHIZOPHRENIA
     Route: 048
  2. PROZAC [Concomitant]

REACTIONS (3)
  - EJACULATION DISORDER [None]
  - INTENTIONAL OVERDOSE [None]
  - SUICIDE ATTEMPT [None]
